FAERS Safety Report 18997636 (Version 1)
Quarter: 2021Q1

REPORT INFORMATION
  Report Type: Spontaneous
  Country: US (occurrence: US)
  Receive Date: 20210311
  Receipt Date: 20210311
  Transmission Date: 20210420
  Serious: No
  Sender: FDA-Public Use
  Company Number: None

PATIENT
  Age: 39 Year
  Sex: Female
  Weight: 92 kg

DRUGS (9)
  1. HYDROXYZINE 50 MG [Concomitant]
  2. BUPROPION XL 150 MG [Concomitant]
     Active Substance: BUPROPION
  3. POTASSIUM CHLORIDE ER 10 MEQ [Concomitant]
  4. METHADONE 150 MG [Concomitant]
  5. FUROSEMIDE 80 MG [Concomitant]
     Active Substance: FUROSEMIDE
  6. NORTRIPTYLINE 50 MG [Concomitant]
  7. XULANE 150?35 MCG [Concomitant]
  8. EPCLUSA [Suspect]
     Active Substance: SOFOSBUVIR\VELPATASVIR
     Indication: CHRONIC HEPATITIS C
     Route: 048
     Dates: start: 20201210, end: 20210311
  9. ONDANSETRON 4 MG [Concomitant]
     Active Substance: ONDANSETRON

REACTIONS (2)
  - Flushing [None]
  - Nausea [None]

NARRATIVE: CASE EVENT DATE: 20210201
